FAERS Safety Report 15101211 (Version 6)
Quarter: 2020Q4

REPORT INFORMATION
  Report Type: Spontaneous
  Country: FR (occurrence: FR)
  Receive Date: 20180703
  Receipt Date: 20201209
  Transmission Date: 20210113
  Serious: Yes (Death, Other)
  Sender: FDA-Public Use
  Company Number: FR-MYLANLABS-2018M1047062

PATIENT
  Age: 16 Year
  Sex: Male

DRUGS (26)
  1. CISPLATIN. [Suspect]
     Active Substance: CISPLATIN
     Indication: METASTASES TO BONE
     Dosage: UNK
     Route: 065
  2. TEMOZOLOMIDE. [Suspect]
     Active Substance: TEMOZOLOMIDE
     Indication: MEDULLOBLASTOMA RECURRENT
     Dosage: 200 MG/M2, DAILY
     Route: 048
     Dates: end: 201608
  3. TEMOZOLOMIDE. [Suspect]
     Active Substance: TEMOZOLOMIDE
     Dosage: UNK
     Route: 048
     Dates: end: 201212
  4. ETOPOSIDE. [Suspect]
     Active Substance: ETOPOSIDE
     Indication: METASTASES TO BONE
     Dosage: UNK
     Route: 065
     Dates: end: 201212
  5. IRINOTECAN [Suspect]
     Active Substance: IRINOTECAN
     Indication: METASTASES TO BONE
     Dosage: UNK
     Route: 065
  6. CARBOPLATIN. [Suspect]
     Active Substance: CARBOPLATIN
     Indication: METASTASES TO BONE
     Dosage: UNK
     Route: 065
  7. CYCLOPHOSPHAMIDE. [Suspect]
     Active Substance: CYCLOPHOSPHAMIDE
     Indication: METASTASES TO BONE MARROW
     Dosage: UNK
     Route: 065
     Dates: end: 201212
  8. CISPLATIN. [Suspect]
     Active Substance: CISPLATIN
     Indication: METASTASES TO BONE MARROW
     Dosage: UNK
     Route: 065
  9. CARBOPLATIN. [Suspect]
     Active Substance: CARBOPLATIN
     Indication: METASTASES TO BONE MARROW
     Dosage: UNK
     Route: 065
  10. BUSULFAN. [Suspect]
     Active Substance: BUSULFAN
     Indication: METASTASES TO BONE MARROW
     Dosage: UNK
     Route: 065
  11. SONIDEGIB [Suspect]
     Active Substance: SONIDEGIB
     Indication: MEDULLOBLASTOMA RECURRENT
     Dosage: 400 MILLIGRAM, QD
     Route: 065
  12. TEMOZOLOMIDE. [Suspect]
     Active Substance: TEMOZOLOMIDE
     Dosage: UNK
     Route: 048
  13. CELECOXIB. [Suspect]
     Active Substance: CELECOXIB
     Dosage: UNK
     Route: 065
  14. BUSULFAN. [Suspect]
     Active Substance: BUSULFAN
     Indication: METASTASES TO BONE
  15. VISMODEGIB. [Suspect]
     Active Substance: VISMODEGIB
     Indication: MEDULLOBLASTOMA RECURRENT
     Dosage: 150 MILLIGRAM, QD
     Route: 048
     Dates: start: 20150128
  16. MORPHINE [Concomitant]
     Active Substance: MORPHINE
     Indication: PAIN
     Dosage: UNK
     Route: 065
  17. TEMOZOLOMIDE. [Suspect]
     Active Substance: TEMOZOLOMIDE
     Indication: METASTASES TO BONE
     Dosage: 150 MG/M2, DAILY, FIRST CYCLE
     Route: 048
  18. CELECOXIB. [Suspect]
     Active Substance: CELECOXIB
     Indication: PRODUCT USED FOR UNKNOWN INDICATION
     Dosage: UNK
     Route: 065
     Dates: end: 201212
  19. CYCLOPHOSPHAMIDE. [Suspect]
     Active Substance: CYCLOPHOSPHAMIDE
     Indication: METASTASES TO BONE
     Dosage: UNK
     Route: 065
  20. SONIDEGIB [Suspect]
     Active Substance: SONIDEGIB
     Dosage: 800 MILLIGRAM, QD
     Route: 065
     Dates: start: 20161102
  21. ITRACONAZOLE. [Suspect]
     Active Substance: ITRACONAZOLE
     Indication: MEDULLOBLASTOMA RECURRENT
     Dosage: 150 MG, BID
     Route: 065
     Dates: start: 201510
  22. TEMOZOLOMIDE. [Suspect]
     Active Substance: TEMOZOLOMIDE
     Dosage: UNK
     Route: 065
     Dates: end: 201212
  23. ETOPOSIDE. [Suspect]
     Active Substance: ETOPOSIDE
     Indication: METASTASES TO BONE MARROW
     Dosage: UNK
     Route: 065
  24. IRINOTECAN [Suspect]
     Active Substance: IRINOTECAN
     Indication: METASTASES TO BONE MARROW
     Dosage: UNK
     Route: 065
  25. TEMOZOLOMIDE. [Suspect]
     Active Substance: TEMOZOLOMIDE
     Indication: METASTASES TO BONE MARROW
     Dosage: UNK
     Route: 065
     Dates: end: 201212
  26. SONIDEGIB [Suspect]
     Active Substance: SONIDEGIB
     Dosage: 400 MILLIGRAM, QD
     Route: 065
     Dates: start: 20160909

REACTIONS (16)
  - Blood creatine phosphokinase increased [Fatal]
  - Dysgeusia [Fatal]
  - Vomiting [Fatal]
  - Urinary retention [Fatal]
  - Disease recurrence [Fatal]
  - Hypoaesthesia [Fatal]
  - Alopecia [Fatal]
  - Diarrhoea [Fatal]
  - Therapeutic product effect incomplete [Fatal]
  - Disease progression [Fatal]
  - Pain [Fatal]
  - C-reactive protein increased [Fatal]
  - Paraparesis [Fatal]
  - Muscle spasms [Fatal]
  - Drug ineffective [Fatal]
  - Acquired gene mutation [Fatal]

NARRATIVE: CASE EVENT DATE: 20161102
